FAERS Safety Report 14546641 (Version 1)
Quarter: 2018Q1

REPORT INFORMATION
  Report Type: Spontaneous
  Country: US (occurrence: US)
  Receive Date: 20180219
  Receipt Date: 20180219
  Transmission Date: 20180509
  Serious: Yes (Other)
  Sender: FDA-Public Use
  Company Number: US-ASTELLAS-2018US008512

PATIENT
  Sex: Male

DRUGS (2)
  1. TACROLIMUS. [Suspect]
     Active Substance: TACROLIMUS
     Indication: RENAL TRANSPLANT
     Dosage: UNK UNK, UNKNOWN FREQ.
     Route: 065
  2. ALEMTUZUMAB [Concomitant]
     Active Substance: ALEMTUZUMAB
     Indication: RENAL TRANSPLANT
     Dosage: UNK UNK, UNKNOWN FREQ.
     Route: 065

REACTIONS (13)
  - Necrosis [Unknown]
  - Kidney transplant rejection [Recovered/Resolved]
  - Atypical haemolytic uraemic syndrome [Recovered/Resolved]
  - Transplant failure [Recovered/Resolved]
  - Ureteric stenosis [Unknown]
  - Atrophy [Unknown]
  - Pancytopenia [Unknown]
  - Transplant rejection [Recovered/Resolved]
  - BK virus infection [Unknown]
  - Urinary tract infection [Unknown]
  - Intestinal fibrosis [Unknown]
  - Respiratory disorder [Unknown]
  - Thrombotic microangiopathy [Unknown]
